FAERS Safety Report 8535663-2 (Version None)
Quarter: 2012Q3

REPORT INFORMATION
  Report Type: 
  Country: None (occurrence: None)
  Receive Date: 20120725
  Receipt Date: 20120719
  Transmission Date: 20120928
  Serious: No
  Sender: FDA-Public Use
  Company Number: US-PFIZER INC-2012175742

PATIENT
  Sex: Male
  Weight: 84.807 kg

DRUGS (12)
  1. NIACIN [Concomitant]
     Indication: BLOOD CHOLESTEROL INCREASED
     Dosage: 500 MG, UNK
  2. METOPROLOL [Concomitant]
     Indication: HYPERTENSION
     Dosage: 25 MG, 2X/DAY
  3. LYRICA [Suspect]
     Indication: PARAESTHESIA
     Dosage: 50 MG, DAILY
     Dates: start: 20120101
  4. LYRICA [Suspect]
     Indication: HYPOAESTHESIA
     Dosage: 150 MG, 2X/DAY
     Dates: start: 20120718
  5. METFORMIN [Concomitant]
     Indication: DIABETES MELLITUS
     Dosage: 1000 MG, 2X/DAY
  6. LOVAZA [Concomitant]
     Indication: ANTICOAGULANT THERAPY
     Dosage: UNK
  7. OXYCODONE [Concomitant]
     Indication: BACK PAIN
     Dosage: 10 MG, 4X/DAY
  8. LYRICA [Suspect]
     Indication: PAIN
     Dosage: 150 MG, DAILY
     Dates: start: 20120629
  9. HYDROCHLOROTHIAZIDE [Concomitant]
     Indication: HYPERTENSION
     Dosage: 25 MG, DAILY
  10. LISINOPRIL [Concomitant]
     Indication: HYPERTENSION
     Dosage: 10 MG, DAILY
  11. TRICOR [Concomitant]
     Indication: BLOOD CHOLESTEROL INCREASED
     Dosage: 145 MG, DAILY
  12. FENTANYL [Concomitant]
     Indication: BACK PAIN
     Dosage: ONE PATCH EVERY THREE DAYS

REACTIONS (8)
  - FLUID RETENTION [None]
  - WEIGHT INCREASED [None]
  - DRUG INEFFECTIVE [None]
  - FEELING ABNORMAL [None]
  - IMPAIRED DRIVING ABILITY [None]
  - THIRST [None]
  - VISION BLURRED [None]
  - VISUAL IMPAIRMENT [None]
